FAERS Safety Report 7927288-4 (Version None)
Quarter: 2011Q4

REPORT INFORMATION
  Report Type: 
  Country: None (occurrence: None)
  Receive Date: 20111118
  Receipt Date: 20111104
  Transmission Date: 20120403
  Serious: Yes (Hospitalization, Other)
  Sender: FDA-Public Use
  Company Number: PHHY2011BR097692

PATIENT
  Sex: Male

DRUGS (7)
  1. ALDACTONE [Concomitant]
  2. SANDOSTATIN LAR [Suspect]
     Indication: BLOOD GROWTH HORMONE INCREASED
  3. LOSARTAN [Concomitant]
  4. CARVEDILOL [Concomitant]
  5. AMIODARONE HCL [Concomitant]
  6. DIGOXIN [Concomitant]
  7. WARFARIN SODIUM [Concomitant]
     Indication: HYPERCOAGULATION

REACTIONS (4)
  - FATIGUE [None]
  - CARDIOMEGALY [None]
  - DYSPNOEA [None]
  - MALAISE [None]
